FAERS Safety Report 5793515-5 (Version None)
Quarter: 2008Q2

REPORT INFORMATION
  Report Type: 
  Country: None (occurrence: None)
  Receive Date: 20080627
  Receipt Date: 20080618
  Transmission Date: 20081010
  Serious: Yes (Other)
  Sender: FDA-Public Use
  Company Number: BR-JNJFOC-20080604967

PATIENT
  Age: 44 Year
  Sex: Female
  Weight: 91 kg

DRUGS (5)
  1. RISPERDAL [Suspect]
     Indication: BIPOLAR DISORDER
     Route: 048
  2. BROMOPIRIN [Suspect]
     Route: 048
  3. BROMOPIRIN [Suspect]
     Indication: DEPRESSION
     Dosage: BROMAZEPAM 1MG/SULPIRIDE 25 MG
     Route: 048
  4. TENADREN [Concomitant]
     Indication: PALPITATIONS
     Dosage: PROPRANOLOL HYDROCHLORIDE 80 MG/ HYDROCHLOROTHIAZIDE 12.5 MG
  5. DOSTINEX [Concomitant]
     Indication: BLOOD PROLACTIN INCREASED
     Dosage: 1 TABLET EVERY MONDAYS AND THURSDAYS

REACTIONS (6)
  - BLOOD PROLACTIN INCREASED [None]
  - GALACTORRHOEA [None]
  - MAMMOGRAM ABNORMAL [None]
  - PALPITATIONS [None]
  - POOR QUALITY SLEEP [None]
  - WEIGHT INCREASED [None]
